FAERS Safety Report 9431073 (Version 1)
Quarter: 2013Q3

REPORT INFORMATION
  Report Type: Spontaneous
  Country: JP (occurrence: JP)
  Receive Date: 20130730
  Receipt Date: 20130730
  Transmission Date: 20140515
  Serious: Yes (Other)
  Sender: FDA-Public Use
  Company Number: JP-OTSUKA-JP-2013-12258

PATIENT
  Age: 42 Year
  Sex: Female

DRUGS (3)
  1. BUSULFEX [Suspect]
     Indication: CORD BLOOD TRANSPLANT THERAPY
     Dosage: 12.8 MG/KG, DAILY DOSE
     Route: 041
  2. FLUDARABINE [Concomitant]
     Indication: CORD BLOOD TRANSPLANT THERAPY
     Dosage: 120 MG/M2, DAILY DOSE
     Route: 042
  3. CYCLOPHOSPHAMIDE [Concomitant]
     Indication: CORD BLOOD TRANSPLANT THERAPY
     Dosage: 120 MG/KG, DAILY DOSE
     Route: 065

REACTIONS (5)
  - Cytomegalovirus colitis [Unknown]
  - Viral haemorrhagic cystitis [Unknown]
  - Idiopathic pneumonia syndrome [Unknown]
  - Thrombotic microangiopathy [Unknown]
  - Renal failure [Unknown]
